FAERS Safety Report 6924998-2 (Version None)
Quarter: 2010Q3

REPORT INFORMATION
  Report Type: 
  Country: None (occurrence: None)
  Receive Date: 20100811
  Receipt Date: 20100629
  Transmission Date: 20110219
  Serious: Yes (Death)
  Sender: FDA-Public Use
  Company Number: 2010MA001357

PATIENT
  Age: 21 Month
  Sex: Male

DRUGS (1)
  1. FEVERALL [Suspect]
     Indication: PYREXIA
     Dosage: 250 MG;QID
     Route: 054
     Dates: start: 20100317, end: 20100320

REACTIONS (1)
  - HEPATIC NECROSIS [None]
